FAERS Safety Report 9619641 (Version 1)
Quarter: 2013Q4

REPORT INFORMATION
  Report Type: Spontaneous
  Country: NL (occurrence: NL)
  Receive Date: 20131014
  Receipt Date: 20131014
  Transmission Date: 20140711
  Serious: Yes (Death)
  Sender: FDA-Public Use
  Company Number: PHHY2013NL114972

PATIENT
  Age: 67 Year
  Sex: Male

DRUGS (1)
  1. DICLOFENAC [Suspect]
     Indication: ARTHRITIS
     Dosage: 2 DF, TID
     Route: 048
     Dates: start: 20121029

REACTIONS (1)
  - Cerebral haemorrhage [Fatal]
